FAERS Safety Report 7032835-3 (Version None)
Quarter: 2010Q4

REPORT INFORMATION
  Report Type: 
  Country: None (occurrence: None)
  Receive Date: 20101004
  Receipt Date: 20100928
  Transmission Date: 20110411
  Serious: Yes (Other)
  Sender: FDA-Public Use
  Company Number: CIP10002364

PATIENT
  Age: 62 Year
  Sex: Female

DRUGS (1)
  1. ACTONEL [Suspect]
     Dosage: ORAL
     Route: 048

REACTIONS (5)
  - CONCUSSION [None]
  - DRUG INEFFECTIVE [None]
  - FALL [None]
  - LOSS OF CONSCIOUSNESS [None]
  - POST-TRAUMATIC AMNESTIC DISORDER [None]
